FAERS Safety Report 5460707-4 (Version None)
Quarter: 2007Q3

REPORT INFORMATION
  Report Type: 
  Country: None (occurrence: None)
  Receive Date: 20070918
  Receipt Date: 20070903
  Transmission Date: 20080115
  Serious: Yes (Other)
  Sender: FDA-Public Use
  Company Number: B0486921A

PATIENT
  Age: 6 Year
  Sex: Female

DRUGS (3)
  1. BUSULPHAN (FORMULATION UNKNOWN)  (BUSULFAN) (GENERIC) [Suspect]
     Indication: BONE MARROW TRANSPLANT
     Dosage: 140 MG/M2 / FOUR TIMES PER DAY / UNKNOWN
  2. CYCLOPHOSPHAMIDE [Suspect]
     Indication: BONE MARROW TRANSPLANT
     Dosage: 50 MG/KG / FOUR TIMES PER DAY / UNKNOWN
  3. CYCLOSPORINE [Concomitant]

REACTIONS (2)
  - PANCREATITIS [None]
  - THROMBOTIC MICROANGIOPATHY [None]
